FAERS Safety Report 18556681 (Version 1)
Quarter: 2020Q4

REPORT INFORMATION
  Report Type: Report from Study
  Country: IL (occurrence: IL)
  Receive Date: 20201128
  Receipt Date: 20201128
  Transmission Date: 20210114
  Serious: Yes (Hospitalization)
  Sender: FDA-Public Use
  Company Number: IL-SHIRE-IL201901860AA

PATIENT
  Sex: Female

DRUGS (6)
  1. VELAGLUCERASE ALFA [Suspect]
     Active Substance: VELAGLUCERASE ALFA
     Dosage: 3 VIALS EVERY TWO WEEKS (A TOTAL OF 6 VIALS PER MONTH)
     Route: 042
     Dates: start: 20111225
  2. ARCOXIA [Concomitant]
     Active Substance: ETORICOXIB
  3. PREDNISONE. [Concomitant]
     Active Substance: PREDNISONE
  4. CEFOVIT [Concomitant]
  5. VELAGLUCERASE ALFA [Suspect]
     Active Substance: VELAGLUCERASE ALFA
     Indication: GAUCHER^S DISEASE
     Dosage: 2400 INTERNATIONAL UNIT, 1X/2WKS (TOTAL OF 4800 UNIT PER MONTH)
     Route: 042
     Dates: start: 20111225
  6. OMEPRADEX [Concomitant]
     Active Substance: OMEPRAZOLE

REACTIONS (8)
  - Rash [Unknown]
  - Oropharyngeal pain [Unknown]
  - Exposure during pregnancy [Unknown]
  - Pyrexia [Unknown]
  - Back pain [Unknown]
  - Arthralgia [Unknown]
  - Pelvic pain [Unknown]
  - Off label use [Unknown]
